FAERS Safety Report 13596506 (Version 1)
Quarter: 2017Q2

REPORT INFORMATION
  Report Type: Spontaneous
  Country: US (occurrence: US)
  Receive Date: 20170531
  Receipt Date: 20170531
  Transmission Date: 20170830
  Serious: Yes (Other)
  Sender: FDA-Public Use
  Company Number: US-CPL-000004

PATIENT
  Age: 57 Year
  Sex: Female

DRUGS (23)
  1. IRON [Concomitant]
     Active Substance: IRON
  2. NIFEDIPINE. [Concomitant]
     Active Substance: NIFEDIPINE
  3. AMIODARONE [Concomitant]
     Active Substance: AMIODARONE
  4. ESCITALOPRAM [Concomitant]
     Active Substance: ESCITALOPRAM OXALATE
  5. ESOMEPRAZOLE [Concomitant]
     Active Substance: ESOMEPRAZOLE
  6. CLONAZEPAM. [Concomitant]
     Active Substance: CLONAZEPAM
  7. ACICLOVIR [Suspect]
     Active Substance: ACYCLOVIR
     Indication: HERPES SIMPLEX
     Route: 048
  8. PRAVASTATIN. [Concomitant]
     Active Substance: PRAVASTATIN
  9. PARAFFIN [Concomitant]
     Active Substance: PARAFFIN
     Dosage: TOPICAL DAILY
  10. MORPHINE [Concomitant]
     Active Substance: MORPHINE
     Indication: PAIN
     Dosage: EVERY 6 H AS NEEDED
  11. METOPROLOL. [Concomitant]
     Active Substance: METOPROLOL
  12. AZITHROMYCIN ANHYDROUS. [Concomitant]
     Active Substance: AZITHROMYCIN ANHYDROUS
  13. ACETYLSALICYLIC ACID [Concomitant]
     Active Substance: ASPIRIN
  14. LEVOTHYROXINE. [Concomitant]
     Active Substance: LEVOTHYROXINE
  15. LISINOPRIL. [Concomitant]
     Active Substance: LISINOPRIL
  16. LEVOSALBUTAMOL [Concomitant]
     Active Substance: LEVALBUTEROL
     Indication: DYSPNOEA
     Dosage: 2 PUFFS TWICE DAILY AS NEEDED
  17. CICLOPIROX. [Concomitant]
     Active Substance: CICLOPIROX
     Dosage: 0.7% TOPICAL DAILY
  18. FUROSEMIDE. [Concomitant]
     Active Substance: FUROSEMIDE
  19. DIGOXIN. [Concomitant]
     Active Substance: DIGOXIN
  20. NYSTATIN. [Concomitant]
     Active Substance: NYSTATIN
  21. TRIAMCINOLONE [Concomitant]
     Active Substance: TRIAMCINOLONE
     Indication: RASH
     Dosage: 0.1% TRANSDERMAL DAILY AS NEEDED
     Route: 062
  22. UREA. [Concomitant]
     Active Substance: UREA
     Indication: DRY SKIN
     Dosage: 10% LOTION APPLY TWICE DAILY AS NEEDED
  23. PROCHLORPERAZINE. [Concomitant]
     Active Substance: PROCHLORPERAZINE
     Indication: NAUSEA
     Dosage: EVERY 6 H AS NEEDED

REACTIONS (2)
  - Dermatitis [Unknown]
  - Flushing [Unknown]
